FAERS Safety Report 7731162-6 (Version None)
Quarter: 2011Q3

REPORT INFORMATION
  Report Type: 
  Country: None (occurrence: None)
  Receive Date: 20110906
  Receipt Date: 20110906
  Transmission Date: 20111222
  Serious: Yes (Other)
  Sender: FDA-Public Use
  Company Number: None

PATIENT
  Age: 52 Year
  Sex: Female
  Weight: 74.842 kg

DRUGS (1)
  1. CYMBALTA [Suspect]
     Indication: FIBROMYALGIA
     Dosage: 30MG
     Route: 048
     Dates: start: 20100501, end: 20100531

REACTIONS (2)
  - DYSKINESIA [None]
  - MUSCLE CONTRACTIONS INVOLUNTARY [None]
